FAERS Safety Report 20880690 (Version 1)
Quarter: 2022Q2

REPORT INFORMATION
  Report Type: Spontaneous
  Country: US (occurrence: US)
  Receive Date: 20220526
  Receipt Date: 20220526
  Transmission Date: 20220720
  Serious: No
  Sender: FDA-Public Use
  Company Number: US-RADIUS HEALTH INC.-2021US004048

PATIENT

DRUGS (1)
  1. TYMLOS [Suspect]
     Active Substance: ABALOPARATIDE
     Indication: Product used for unknown indication
     Dosage: 80MCG QD
     Route: 058
     Dates: start: 202010

REACTIONS (4)
  - Urticaria [Recovered/Resolved]
  - Swelling [Recovered/Resolved]
  - Flushing [Recovered/Resolved]
  - Rash [Unknown]
